FAERS Safety Report 7321242-1 (Version None)
Quarter: 2011Q1

REPORT INFORMATION
  Report Type: 
  Country: None (occurrence: None)
  Receive Date: 20110228
  Receipt Date: 20110217
  Transmission Date: 20110831
  Serious: Yes (Hospitalization)
  Sender: FDA-Public Use
  Company Number: PHHY2011AR13354

PATIENT
  Sex: Male

DRUGS (1)
  1. EXELON [Suspect]
     Indication: DEMENTIA ALZHEIMER'S TYPE
     Dosage: 9.5 MG/ 24 HRS
     Route: 062
     Dates: start: 20100812

REACTIONS (4)
  - BRONCHOSPASM [None]
  - HAEMORRHAGE URINARY TRACT [None]
  - BRONCHITIS [None]
  - URINARY TRACT INFECTION [None]
